FAERS Safety Report 20292523 (Version 1)
Quarter: 2022Q1

REPORT INFORMATION
  Report Type: Spontaneous
  Country: US (occurrence: None)
  Receive Date: 20220104
  Receipt Date: 20220104
  Transmission Date: 20220423
  Serious: No
  Sender: FDA-Public Use
  Company Number: None

PATIENT
  Age: 73 Year
  Sex: Female

DRUGS (1)
  1. ENBREL [Suspect]
     Active Substance: ETANERCEPT
     Indication: Rheumatoid arthritis
     Dosage: INJECT 50MG SUBCUTANEOUSLY  ONCE WEEKLY  IN THE ABDOMEN, THIGH, OR UPPER ARM WITH AUTO INJECTION
     Route: 058
     Dates: start: 201910

REACTIONS (2)
  - Infection [None]
  - Therapy interrupted [None]
